FAERS Safety Report 5771831-0 (Version None)
Quarter: 2008Q2

REPORT INFORMATION
  Report Type: 
  Country: None (occurrence: None)
  Receive Date: 20080613
  Receipt Date: 20080605
  Transmission Date: 20081010
  Serious: Yes (Other)
  Sender: FDA-Public Use
  Company Number: A0732005A

PATIENT
  Age: 58 Year
  Sex: Female

DRUGS (2)
  1. LAPATINIB [Suspect]
     Route: 048
  2. CAPECITABINE [Suspect]
     Route: 048

REACTIONS (1)
  - DYSPNOEA [None]
